FAERS Safety Report 9065103 (Version 1)
Quarter: 2013Q1

REPORT INFORMATION
  Report Type: Report from Study
  Country: US (occurrence: US)
  Receive Date: 20130131
  Receipt Date: 20130131
  Transmission Date: 20140127
  Serious: No
  Sender: FDA-Public Use
  Company Number: US-ABBOTT-12P-163-1011905-00

PATIENT
  Age: 51 Year
  Sex: Female

DRUGS (5)
  1. HUMIRA [Suspect]
     Indication: PSORIASIS
     Dates: start: 20121015, end: 20121015
  2. HUMIRA [Suspect]
     Dosage: EVERY OTHER SUNDAY
     Dates: start: 20121021
  3. XANAX [Concomitant]
     Indication: ANXIETY
  4. FLEXERIL [Concomitant]
     Indication: BACK PAIN
     Dosage: AS NEEDED; THE PATIENT DOES NOT USE THIS OFTEN
  5. FLEXERIL [Concomitant]
     Indication: MYALGIA

REACTIONS (5)
  - Urticaria [Recovering/Resolving]
  - Sinusitis [Not Recovered/Not Resolved]
  - Urticaria [Recovering/Resolving]
  - Upper respiratory tract infection [Recovering/Resolving]
  - Candida infection [Recovering/Resolving]
